FAERS Safety Report 13689211 (Version 1)
Quarter: 2017Q2

REPORT INFORMATION
  Report Type: Spontaneous
  Country: US (occurrence: US)
  Receive Date: 20170624
  Receipt Date: 20170624
  Transmission Date: 20170830
  Serious: Yes (Death, Hospitalization)
  Sender: FDA-Public Use
  Company Number: None

PATIENT
  Age: 57 Year
  Sex: Female
  Weight: 90 kg

DRUGS (1)
  1. XANAX [Suspect]
     Active Substance: ALPRAZOLAM
     Indication: ANXIETY
     Dates: start: 19870101, end: 20170324

REACTIONS (6)
  - Mental status changes [None]
  - Anxiety [None]
  - Insomnia [None]
  - Completed suicide [None]
  - Tremor [None]
  - Withdrawal syndrome [None]
